FAERS Safety Report 10261924 (Version 1)
Quarter: 2014Q2

REPORT INFORMATION
  Report Type: Spontaneous
  Country: SE (occurrence: SE)
  Receive Date: 20140626
  Receipt Date: 20140626
  Transmission Date: 20141212
  Serious: Yes (Hospitalization)
  Sender: FDA-Public Use
  Company Number: SE-WATSON-2014-13410

PATIENT
  Age: 68 Year
  Sex: Male

DRUGS (10)
  1. RAMIPRIL ACTAVIS [Suspect]
     Indication: CARDIAC FAILURE
     Dosage: 5 MG, UNKNOWN
     Route: 048
     Dates: start: 20131120, end: 20140524
  2. ATORVASTATIN SANDOZ [Suspect]
     Indication: HYPERCHOLESTEROLAEMIA
     Dosage: 40 MG, QHS; 0.5 TABLETTER TILL NATTEN (0.5 TABLETS AT NIGHT)
     Route: 048
     Dates: start: 20131120, end: 201405
  3. BRILIQUE [Concomitant]
     Indication: THROMBOSIS PROPHYLAXIS
     Dosage: UNK; ASTRA ZENECA AB
     Route: 065
     Dates: start: 20140321, end: 20140520
  4. PANTOLOC                           /01263204/ [Concomitant]
     Indication: DYSPEPSIA
     Dosage: UNK; TAKEDA PHARMA AB
     Route: 065
  5. TROMBYL [Concomitant]
     Indication: MYOCARDIAL INFARCTION
     Dosage: UNK; PFIZER AB
     Route: 065
  6. FURIX [Concomitant]
     Indication: PRODUCT USED FOR UNKNOWN INDICATION
     Dosage: UNK; TKEDA PHARMA AB
     Route: 065
  7. BISOPROLOL ACTAVIS [Concomitant]
     Indication: PRODUCT USED FOR UNKNOWN INDICATION
     Dosage: UNK; ACTAVIS GROUP PTC EHF.
     Route: 065
  8. CANODERM [Concomitant]
     Indication: PRODUCT USED FOR UNKNOWN INDICATION
     Dosage: UNK; ACO HUD NORDIC AB
     Route: 065
  9. ALLOPURINOL NORDIC DRUGS [Concomitant]
     Indication: GOUT
     Dosage: UNK; RATOPHARM GMBH
     Route: 065
  10. PANODIL [Concomitant]
     Indication: PAIN
     Dosage: UNK; GLAXOSMITHKLINE CONSUMER HEATHCARE A/S
     Route: 065

REACTIONS (2)
  - Renal failure [Unknown]
  - Myoglobin blood increased [Unknown]
